FAERS Safety Report 6057394-3 (Version None)
Quarter: 2009Q1

REPORT INFORMATION
  Report Type: 
  Country: None (occurrence: None)
  Receive Date: 20090126
  Receipt Date: 20090126
  Transmission Date: 20090719
  Serious: No
  Sender: FDA-Public Use
  Company Number: None

PATIENT
  Age: 79 Year
  Sex: Female
  Weight: 83.9154 kg

DRUGS (4)
  1. ADENOSINE [Suspect]
     Indication: DYSPNOEA
     Dosage: ONE IV DRIP
     Route: 041
     Dates: start: 20081231, end: 20081231
  2. ADENOSINE [Suspect]
     Indication: MYOCARDIAL INFARCTION
     Dosage: ONE IV DRIP
     Route: 041
     Dates: start: 20081231, end: 20081231
  3. ADENOSINE [Suspect]
     Indication: PAIN IN EXTREMITY
     Dosage: ONE IV DRIP
     Route: 041
     Dates: start: 20081231, end: 20081231
  4. CARDIOLITE [Suspect]
     Dates: start: 20081231, end: 20081231

REACTIONS (6)
  - CHEST DISCOMFORT [None]
  - FEELING ABNORMAL [None]
  - PAIN IN EXTREMITY [None]
  - POST PROCEDURAL COMPLICATION [None]
  - PRURITUS [None]
  - VEIN DISORDER [None]
